FAERS Safety Report 9181251 (Version 2)
Quarter: 2013Q1

REPORT INFORMATION
  Report Type: Spontaneous
  Country: US (occurrence: US)
  Receive Date: 20130322
  Receipt Date: 20130322
  Transmission Date: 20140127
  Serious: No
  Sender: FDA-Public Use
  Company Number: US-MYLANLABS-2012S1024393

PATIENT
  Age: 70 Year
  Sex: Female
  Weight: 70.31 kg

DRUGS (7)
  1. EMSAM [Suspect]
     Indication: DEPRESSION
     Dosage: Q24H
     Route: 062
     Dates: start: 201209, end: 201211
  2. EMSAM [Suspect]
     Indication: DEPRESSION
     Dosage: Q24H
     Route: 062
     Dates: start: 201211
  3. REMERON [Concomitant]
  4. ZOCOR [Concomitant]
     Route: 048
  5. ASA [Concomitant]
     Route: 048
  6. PREMPRO [Concomitant]
     Route: 048
  7. MULTIVITAMIN [Concomitant]

REACTIONS (1)
  - Application site erythema [Not Recovered/Not Resolved]
